FAERS Safety Report 25012194 (Version 2)
Quarter: 2025Q2

REPORT INFORMATION
  Report Type: Spontaneous
  Country: JP (occurrence: JP)
  Receive Date: 20250226
  Receipt Date: 20250403
  Transmission Date: 20250717
  Serious: Yes (Death, Other)
  Sender: BRISTOL MYERS SQUIBB
  Company Number: JP-BRISTOL-MYERS SQUIBB COMPANY-2025-024367

PATIENT
  Sex: Male

DRUGS (1)
  1. REBLOZYL [Suspect]
     Active Substance: LUSPATERCEPT-AAMT
     Indication: Anaemia of malignant disease
     Dosage: DOSE : UNAVAILABLE;     FREQ : ONCE/ 3 WEEKS
     Route: 058

REACTIONS (2)
  - Fall [Fatal]
  - Head injury [Fatal]
